FAERS Safety Report 21728356 (Version 2)
Quarter: 2022Q4

REPORT INFORMATION
  Report Type: Spontaneous
  Country: US (occurrence: US)
  Receive Date: 20221214
  Receipt Date: 20221221
  Transmission Date: 20230113
  Serious: Yes (Other)
  Sender: FDA-Public Use
  Company Number: US-PFIZER INC-202201368782

PATIENT
  Age: 87 Year
  Sex: Female
  Weight: 49.887 kg

DRUGS (3)
  1. PAXLOVID [Suspect]
     Active Substance: NIRMATRELVIR\RITONAVIR
     Indication: COVID-19 treatment
     Dosage: [PF-07321332 150 MG]/[RITONAVIR 100 MG]; 2X/DAY FOR FIVE DAYS
     Route: 048
     Dates: start: 20221129, end: 202212
  2. CLONIDINE HYDROCHLORIDE [Concomitant]
     Active Substance: CLONIDINE HYDROCHLORIDE
     Indication: Hypertension
     Dosage: 2 MG, 2X/DAY
     Route: 048
  3. CATAPRES [Concomitant]
     Active Substance: CLONIDINE HYDROCHLORIDE
     Dosage: 2 MG, 2X/DAY (TWICE A DAY BY MOUTH, ONE IN THE MORNING AND ONE IN THE EVENING)
     Route: 048

REACTIONS (9)
  - Haematochezia [Unknown]
  - Mucous stools [Unknown]
  - Muscle spasms [Unknown]
  - Abdominal discomfort [Unknown]
  - Decreased appetite [Unknown]
  - Vomiting [Unknown]
  - Dry skin [Unknown]
  - Asthenopia [Unknown]
  - Weight decreased [Unknown]

NARRATIVE: CASE EVENT DATE: 20221211
